FAERS Safety Report 7549358-5 (Version None)
Quarter: 2011Q2

REPORT INFORMATION
  Report Type: 
  Country: None (occurrence: None)
  Receive Date: 20110615
  Receipt Date: 20030619
  Transmission Date: 20111010
  Serious: Yes (Death)
  Sender: FDA-Public Use
  Company Number: PHHO2003JP07359

PATIENT
  Sex: Male

DRUGS (6)
  1. LOCHOLEST [Suspect]
     Indication: HYPERCHOLESTEROLAEMIA
     Dosage: 20 MG, UNK
     Route: 048
     Dates: start: 20011030, end: 20021201
  2. HYDANTOL [Concomitant]
     Dosage: UNK
     Dates: start: 19960907, end: 20021201
  3. ANPLAG [Concomitant]
     Dosage: UNK
     Dates: start: 19950215, end: 20021201
  4. BIO THREE [Concomitant]
     Dosage: UNK
     Dates: start: 19090909, end: 20021201
  5. OPALMON [Concomitant]
     Dosage: UNK
     Dates: start: 19950215, end: 20021201
  6. LOPERAMIDE HCL [Concomitant]
     Dosage: UNK
     Dates: start: 19990914, end: 20021201

REACTIONS (1)
  - DEATH [None]
